FAERS Safety Report 9482297 (Version 4)
Quarter: 2015Q3

REPORT INFORMATION
  Report Type: Spontaneous
  Country: US (occurrence: US)
  Receive Date: 20130828
  Receipt Date: 20150831
  Transmission Date: 20151125
  Serious: Yes (Hospitalization, Other)
  Sender: FDA-Public Use
  Company Number: US-BAYER-2013-103641

PATIENT
  Age: 19 Year
  Sex: Female
  Weight: 78.46 kg

DRUGS (5)
  1. MIRENA [Suspect]
     Active Substance: LEVONORGESTREL
     Indication: CONTRACEPTION
     Dosage: 20 MCG/24HR, CONT
     Route: 015
     Dates: start: 20120904, end: 20130320
  2. DOXYCYCLINE. [Concomitant]
     Active Substance: DOXYCYCLINE
  3. LEVOTHYROXINE. [Concomitant]
     Active Substance: LEVOTHYROXINE
     Dosage: UNK
     Dates: start: 20130318
  4. MIRENA [Suspect]
     Active Substance: LEVONORGESTREL
     Indication: MENORRHAGIA
  5. VICOPROFEN [Concomitant]
     Active Substance: HYDROCODONE BITARTRATE\IBUPROFEN

REACTIONS (5)
  - Pain [None]
  - Injury [None]
  - Genital haemorrhage [None]
  - Uterine perforation [None]
  - Device issue [None]

NARRATIVE: CASE EVENT DATE: 201210
